FAERS Safety Report 9260393 (Version 1)
Quarter: 2013Q2

REPORT INFORMATION
  Report Type: Spontaneous
  Country: US (occurrence: US)
  Receive Date: 20130429
  Receipt Date: 20130429
  Transmission Date: 20140414
  Serious: Yes (Other)
  Sender: FDA-Public Use
  Company Number: US-COVIDIEN/TYCO HEALTHCARE/MALLINCKRODT-T201301755

PATIENT
  Sex: 0

DRUGS (1)
  1. METHYLIN EXTENDED-RELEASE [Suspect]
     Indication: PRODUCT USED FOR UNKNOWN INDICATION
     Dosage: UNK

REACTIONS (4)
  - Influenza like illness [Unknown]
  - Agitation [Unknown]
  - Headache [Unknown]
  - Abdominal discomfort [Unknown]
